FAERS Safety Report 23746620 (Version 3)
Quarter: 2024Q2

REPORT INFORMATION
  Report Type: Spontaneous
  Country: ES (occurrence: None)
  Receive Date: 20240416
  Receipt Date: 20240530
  Transmission Date: 20240716
  Serious: Yes (Hospitalization, Other)
  Sender: FDA-Public Use
  Company Number: ES-ROCHE-3526843

PATIENT
  Age: 64 Year
  Sex: Female
  Weight: 64 kg

DRUGS (3)
  1. VABYSMO [Suspect]
     Active Substance: FARICIMAB\FARICIMAB-SVOA
     Indication: Diabetic retinal oedema
     Dosage: LOADING CYCLE X4 MONTHLY, BOTH EYES (AFTER 2ND DOSE)
     Route: 050
     Dates: start: 20231227, end: 20240124
  2. OZURDEX [Concomitant]
     Active Substance: DEXAMETHASONE
     Indication: Macular oedema
     Dates: start: 20230711
  3. VABYSMO [Concomitant]
     Active Substance: FARICIMAB\FARICIMAB-SVOA
     Dates: start: 20231227, end: 20240228

REACTIONS (2)
  - Endophthalmitis [Recovered/Resolved]
  - Macular oedema [Unknown]

NARRATIVE: CASE EVENT DATE: 20240130
